FAERS Safety Report 8522364-X (Version None)
Quarter: 2012Q3

REPORT INFORMATION
  Report Type: 
  Country: None (occurrence: None)
  Receive Date: 20120719
  Receipt Date: 20120713
  Transmission Date: 20120928
  Serious: Yes (Hospitalization)
  Sender: FDA-Public Use
  Company Number: DE-ABBOTT-12P-062-0956000-00

PATIENT
  Age: 56 Year
  Sex: Male
  Weight: 68 kg

DRUGS (3)
  1. PREDNISOLONE [Concomitant]
     Indication: CROHN'S DISEASE
     Dosage: 20 MG DAILY
  2. AZATHIOPRINE [Concomitant]
     Indication: CROHN'S DISEASE
  3. HUMIRA [Suspect]
     Indication: CROHN'S DISEASE
     Route: 058
     Dates: start: 20040701, end: 20120215

REACTIONS (1)
  - INTESTINAL STENOSIS [None]
